FAERS Safety Report 10066167 (Version 1)
Quarter: 2014Q2

REPORT INFORMATION
  Report Type: Spontaneous
  Country: US (occurrence: US)
  Receive Date: 20140408
  Receipt Date: 20140408
  Transmission Date: 20141212
  Serious: No
  Sender: FDA-Public Use
  Company Number: US-PFIZER INC-2014095997

PATIENT
  Age: 64 Year
  Sex: Female
  Weight: 67.12 kg

DRUGS (5)
  1. LYRICA [Suspect]
     Indication: FIBROMYALGIA
     Dosage: 50 MG, 3X/DAY
     Route: 048
  2. LYRICA [Suspect]
     Dosage: 75 MG, 3X/DAY
     Route: 048
     Dates: end: 201401
  3. LYRICA [Suspect]
     Dosage: 100 MG, 3X/DAY
     Route: 048
     Dates: start: 201401
  4. LIPITOR [Concomitant]
     Dosage: UNK, 1X/DAY
  5. ALPRAZOLAM [Concomitant]
     Dosage: 1 MG, 2X/DAY

REACTIONS (4)
  - Malaise [Unknown]
  - Musculoskeletal disorder [Unknown]
  - Spinal osteoarthritis [Unknown]
  - Nerve compression [Unknown]
